FAERS Safety Report 10787804 (Version 5)
Quarter: 2019Q2

REPORT INFORMATION
  Report Type: Report from Study
  Country: CA (occurrence: CA)
  Receive Date: 20150212
  Receipt Date: 20190625
  Transmission Date: 20190711
  Serious: Yes (Other)
  Sender: FDA-Public Use
  Company Number: CA-ROCHE-1343569

PATIENT
  Age: 74 Year
  Sex: Female
  Weight: 57.2 kg

DRUGS (8)
  1. ACETAMINOPHEN. [Concomitant]
     Active Substance: ACETAMINOPHEN
     Route: 048
     Dates: start: 20140130
  2. DIPHENHYDRAMINE HCL [Concomitant]
     Active Substance: DIPHENHYDRAMINE HYDROCHLORIDE
     Route: 048
     Dates: start: 20140130
  3. RITUXAN [Suspect]
     Active Substance: RITUXIMAB
     Indication: RHEUMATOID ARTHRITIS
     Dosage: LAST RITUXIMAB INFUSION ON 13/FEB/2014?DRUG DOSE FIRST ADMINISTERED IS 1000 MG MILLIGRAMS
     Route: 042
     Dates: start: 20140130
  4. METHYLPREDNISOLONE. [Concomitant]
     Active Substance: METHYLPREDNISOLONE
     Route: 042
     Dates: start: 20140130
  5. IBUPROFEN. [Concomitant]
     Active Substance: IBUPROFEN
  6. HYDROXYCHLOROQUINE [Concomitant]
     Active Substance: HYDROXYCHLOROQUINE
  7. FOLIC ACID. [Concomitant]
     Active Substance: FOLIC ACID
  8. METHOTREXATE. [Concomitant]
     Active Substance: METHOTREXATE

REACTIONS (11)
  - Hypogammaglobulinaemia [Not Recovered/Not Resolved]
  - Tooth abscess [Unknown]
  - Fatigue [Unknown]
  - Oropharyngeal pain [Not Recovered/Not Resolved]
  - General physical health deterioration [Unknown]
  - Chest discomfort [Not Recovered/Not Resolved]
  - Lower respiratory tract infection [Unknown]
  - Blood test abnormal [Unknown]
  - Pyrexia [Not Recovered/Not Resolved]
  - Feeling cold [Not Recovered/Not Resolved]
  - White blood cell count increased [Unknown]

NARRATIVE: CASE EVENT DATE: 20140130
